FAERS Safety Report 20505218 (Version 2)
Quarter: 2022Q1

REPORT INFORMATION
  Report Type: Spontaneous
  Country: AU (occurrence: AU)
  Receive Date: 20220223
  Receipt Date: 20220303
  Transmission Date: 20220423
  Serious: Yes (Hospitalization, Other)
  Sender: FDA-Public Use
  Company Number: AU-GENERIC HEALTH PTY. LTD.-2022-02326

PATIENT
  Sex: Male
  Weight: 3.535 kg

DRUGS (3)
  1. METHYLPHENIDATE [Suspect]
     Active Substance: METHYLPHENIDATE
     Indication: Product used for unknown indication
     Dosage: UNK
     Route: 064
  2. FLUOXETINE [Suspect]
     Active Substance: FLUOXETINE HYDROCHLORIDE
     Indication: Depression
     Dosage: 40 MG, QD
     Route: 064
  3. FLUOXETINE [Suspect]
     Active Substance: FLUOXETINE HYDROCHLORIDE
     Indication: Anxiety
     Dosage: 40 MG, QD
     Route: 063

REACTIONS (12)
  - Serotonin syndrome [Recovered/Resolved]
  - Foetal exposure during pregnancy [Unknown]
  - Exposure via breast milk [Unknown]
  - Foetal hypokinesia [Unknown]
  - Foetal distress syndrome [Unknown]
  - Dyskinesia [Unknown]
  - Neonatal disorder [Unknown]
  - Drug withdrawal syndrome neonatal [Unknown]
  - Pyrexia [Unknown]
  - Irritability [Unknown]
  - Tachypnoea [Unknown]
  - Condition aggravated [Unknown]
